FAERS Safety Report 5754381-7 (Version None)
Quarter: 2008Q2

REPORT INFORMATION
  Report Type: 
  Country: None (occurrence: None)
  Receive Date: 20080530
  Receipt Date: 20080522
  Transmission Date: 20081010
  Serious: Yes (Other)
  Sender: FDA-Public Use
  Company Number: US-ABBOTT-08P-163-0453127-00

PATIENT
  Sex: Female
  Weight: 65.83 kg

DRUGS (3)
  1. HUMIRA [Suspect]
     Indication: CROHN'S DISEASE
     Route: 058
     Dates: start: 20070501, end: 20080306
  2. HUMIRA [Suspect]
     Route: 058
     Dates: start: 20080520, end: 20080520
  3. HUMIRA [Suspect]
     Route: 058
     Dates: start: 20080520

REACTIONS (9)
  - ARTHRALGIA [None]
  - BETA-N-ACETYL-D-GLUCOSAMINIDASE INCREASED [None]
  - HYPOKINESIA [None]
  - LYMPHADENOPATHY [None]
  - NECK PAIN [None]
  - PAIN IN EXTREMITY [None]
  - PARVOVIRUS INFECTION [None]
  - PHARYNGOLARYNGEAL PAIN [None]
  - TENDON RUPTURE [None]
